FAERS Safety Report 21351085 (Version 1)
Quarter: 2022Q3

REPORT INFORMATION
  Report Type: Spontaneous
  Country: US (occurrence: US)
  Receive Date: 20220919
  Receipt Date: 20220919
  Transmission Date: 20221026
  Serious: No
  Sender: FDA-Public Use
  Company Number: US-009507513-2209USA005434

PATIENT
  Age: 2 Year

DRUGS (2)
  1. EMEND [Suspect]
     Active Substance: APREPITANT
     Indication: Nausea
     Dosage: UNK
     Route: 048
     Dates: start: 20220914
  2. EMEND [Suspect]
     Active Substance: APREPITANT
     Indication: Vomiting

REACTIONS (1)
  - Adverse event [Unknown]

NARRATIVE: CASE EVENT DATE: 20220901
